FAERS Safety Report 8839502 (Version 1)
Quarter: 2012Q4

REPORT INFORMATION
  Report Type: Spontaneous
  Country: US (occurrence: None)
  Receive Date: 20121012
  Receipt Date: 20121012
  Transmission Date: 20130627
  Serious: Yes (Hospitalization, Other)
  Sender: FDA-Public Use
  Company Number: None

PATIENT
  Age: 30 Year
  Sex: Female
  Weight: 58.97 kg

DRUGS (1)
  1. GADOLINIUM [Suspect]

REACTIONS (5)
  - Dyspnoea [None]
  - Eye irritation [None]
  - Dysuria [None]
  - Bronchitis [None]
  - Sensory disturbance [None]
